FAERS Safety Report 8009342-4 (Version None)
Quarter: 2011Q4

REPORT INFORMATION
  Report Type: 
  Country: None (occurrence: None)
  Receive Date: 20111221
  Receipt Date: 20111207
  Transmission Date: 20120403
  Serious: Yes (Life-Threatening)
  Sender: FDA-Public Use
  Company Number: DSU-2011-09165

PATIENT
  Age: 48 Year
  Sex: Female
  Weight: 47 kg

DRUGS (1)
  1. OLMESARTAN MEDOXOMIL [Suspect]
     Indication: PRODUCT USED FOR UNKNOWN INDICATION
     Dosage: 120 MG DAILY, PER ORAL
     Route: 048
     Dates: start: 20080402, end: 20111112

REACTIONS (3)
  - HYPOTENSION [None]
  - RENAL IMPAIRMENT [None]
  - ANAEMIA [None]
